FAERS Safety Report 4565349-0 (Version None)
Quarter: 2005Q1

REPORT INFORMATION
  Report Type: 
  Country: None (occurrence: None)
  Receive Date: 20050131
  Receipt Date: 20030605
  Transmission Date: 20050727
  Serious: Yes (Hospitalization, Disabling)
  Sender: FDA-Public Use
  Company Number: US-MERCK-0306USA00813

PATIENT
  Age: 41 Year
  Sex: Female
  Weight: 111 kg

DRUGS (4)
  1. VIOXX [Suspect]
     Indication: COSTOCHONDRITIS
     Route: 048
     Dates: start: 20010515, end: 20020101
  2. VIOXX [Suspect]
     Indication: PAIN
     Route: 048
     Dates: start: 20010515, end: 20020101
  3. ATENOLOL AND CHLORTHALIDONE [Concomitant]
     Route: 048
  4. FERROUS SULFATE [Concomitant]
     Route: 048

REACTIONS (39)
  - ABDOMINAL PAIN [None]
  - ADVERSE EVENT [None]
  - AMNESIA [None]
  - ANAEMIA [None]
  - ARTHRALGIA [None]
  - ASTHENIA [None]
  - CHEST PAIN [None]
  - CHEST WALL PAIN [None]
  - CONSTIPATION [None]
  - COSTOCHONDRITIS [None]
  - DIZZINESS [None]
  - EAR PAIN [None]
  - GASTRITIS [None]
  - GASTROENTERITIS VIRAL [None]
  - HAEMATEMESIS [None]
  - HAEMOPTYSIS [None]
  - HEADACHE [None]
  - HIGH DENSITY LIPOPROTEIN DECREASED [None]
  - HYPOKALAEMIA [None]
  - HYPOMAGNESAEMIA [None]
  - INFLAMMATION [None]
  - INJURY [None]
  - MUSCLE SPASMS [None]
  - MUSCULOSKELETAL CHEST PAIN [None]
  - NASAL CONGESTION [None]
  - NECK PAIN [None]
  - PAIN [None]
  - PAIN IN EXTREMITY [None]
  - PAIN IN JAW [None]
  - PHARYNGITIS [None]
  - PHARYNGOLARYNGEAL PAIN [None]
  - RASH PRURITIC [None]
  - RHINITIS ALLERGIC [None]
  - SINOBRONCHITIS [None]
  - SINUSITIS [None]
  - SPINAL OSTEOARTHRITIS [None]
  - SPONDYLITIS [None]
  - UPPER RESPIRATORY TRACT INFECTION [None]
  - VISION BLURRED [None]
